FAERS Safety Report 9994772 (Version 3)
Quarter: 2014Q2

REPORT INFORMATION
  Report Type: Spontaneous
  Country: US (occurrence: None)
  Receive Date: 20140306
  Receipt Date: 20140609
  Transmission Date: 20141212
  Serious: Yes (Life-Threatening, Hospitalization)
  Sender: FDA-Public Use
  Company Number: SYM-2014-18201

PATIENT
  Sex: Female

DRUGS (30)
  1. WELLBUTRIN [Suspect]
     Indication: SMOKING CESSATION THERAPY
  2. CHANTIX [Suspect]
     Indication: SMOKING CESSATION THERAPY
  3. FLOLAN [Suspect]
     Indication: PULMONARY ARTERIAL HYPERTENSION
     Dosage: 49.7 NG/KG/MIN, INTRAVENOUS
     Route: 042
     Dates: start: 20060728
  4. ANTIBIOTICS [Suspect]
     Indication: INFECTION
     Route: 042
  5. SPIRIVA [Suspect]
     Indication: PRODUCT USED FOR UNKNOWN INDICATION
     Route: 055
  6. FLONASE [Suspect]
     Indication: PRODUCT USED FOR UNKNOWN INDICATION
     Dosage: INTRA-NASAL
     Route: 045
  7. ADVAIR [Suspect]
     Indication: PRODUCT USED FOR UNKNOWN INDICATION
     Dosage: 4 PUFFS, INHALATION
     Route: 055
  8. SPIRIT (ETHANOL, SOFT SOAP) [Suspect]
     Indication: PRODUCT USED FOR UNKNOWN INDICATION
  9. SPINAL BLOCKADE (OTHER THERAPEUTIC PRODUCTS) [Concomitant]
  10. PAIN MEDICATION (OTHER THERAPEUTIC PRODUCTS) [Concomitant]
  11. RESTORIL (TEMAZEPAM) [Concomitant]
  12. PROVENTIL HFA (SALBUTAMOL SULFATE) [Concomitant]
  13. LASIX (FUROSEMIDE) [Concomitant]
  14. KLOR-CON (FENTANYL) [Concomitant]
  15. NORCO (VICODIN) (PARACETAMOL, HYDROCODONE BITARTRATE) [Concomitant]
  16. REQUIP (FLUTICASONE PROPIONATE) [Concomitant]
  17. VITAMIN D (ERGOCALCIFEROL) [Concomitant]
  18. LEXAPRO (ESCITALOPRAM OXALATE) [Concomitant]
  19. NEFAZODONE (NEFAZODONE) [Concomitant]
  20. BENZONATATE (BENZONATATE) [Concomitant]
  21. LOPERAMIDE HYDROCHLORIDE (LOPERAMIDE HYDROCHLORIDE) [Concomitant]
  22. FLUCONAZOLE (SERETIDE) (FLUTICASONE PROPIONATE, SALMETEROL XINAFOATE) [Concomitant]
  23. DURAGESIC (FENTANYL) [Concomitant]
  24. OXYGEN (OXYGEN) [Concomitant]
  25. FERROUS SULFATE (FERROUS SULFATE) [Concomitant]
  26. PRAXITEN PLIVA (OXAZEPAM) (OXAZEPAM) [Concomitant]
  27. ZYPREXA (OLANZAPINE) [Concomitant]
  28. HYDROCORTISONE (HYDROCORTISONE) [Concomitant]
  29. SPIRONOLACTONE (SPIRONOLACTONE) [Concomitant]
  30. REVATIO [Suspect]
     Indication: PRODUCT USED FOR UNKNOWN INDICATION

REACTIONS (44)
  - Weight decreased [None]
  - Intervertebral disc protrusion [None]
  - Malaise [None]
  - Spinal cord infection [None]
  - Infection [None]
  - Haemoptysis [None]
  - Fatigue [None]
  - Plasma cell myeloma [None]
  - Condition aggravated [None]
  - Orthopnoea [None]
  - Haemoglobin decreased [None]
  - Palmar erythema [None]
  - Cough [None]
  - Antiphospholipid antibodies [None]
  - Weight decreased [None]
  - Intervertebral disc protrusion [None]
  - Malaise [None]
  - Haemoptysis [None]
  - Fatigue [None]
  - Neoplasm malignant [None]
  - Pulmonary haemorrhage [None]
  - Tachyarrhythmia [None]
  - Adrenal insufficiency [None]
  - Deep vein thrombosis [None]
  - Fibula fracture [None]
  - Cholecystectomy [None]
  - Hypoxia [None]
  - Supraventricular tachycardia [None]
  - Tobacco user [None]
  - Nausea [None]
  - Migraine [None]
  - Exercise test abnormal [None]
  - Pulmonary arterial pressure increased [None]
  - Drug intolerance [None]
  - Anaesthetic complication [None]
  - Haematoma [None]
  - Emphysema [None]
  - Hypotension [None]
  - Back pain [None]
  - Depression [None]
  - Chronic obstructive pulmonary disease [None]
  - Overweight [None]
  - Dermatitis contact [None]
  - Neoplasm malignant [None]
